FAERS Safety Report 14617094 (Version 1)
Quarter: 2018Q1

REPORT INFORMATION
  Report Type: Spontaneous
  Country: GB (occurrence: GB)
  Receive Date: 20180309
  Receipt Date: 20180309
  Transmission Date: 20180509
  Serious: Yes (Other)
  Sender: FDA-Public Use
  Company Number: GB-ASTRAZENECA-2018SE27285

PATIENT
  Age: 59 Year
  Sex: Male
  Weight: 140 kg

DRUGS (9)
  1. GLYCERYL TRINITRATE [Concomitant]
     Active Substance: NITROGLYCERIN
     Indication: CHEST PAIN
     Dosage: 1.0DF UNKNOWN
     Route: 060
     Dates: start: 20180201
  2. AMOXICILLIN. [Concomitant]
     Active Substance: AMOXICILLIN
     Dates: start: 20180122, end: 20180127
  3. PREDNISOLONE. [Concomitant]
     Active Substance: PREDNISOLONE
     Dates: start: 20180122, end: 20180129
  4. BENDROFLUMETHIAZIDE [Concomitant]
     Active Substance: BENDROFLUMETHIAZIDE
     Dates: start: 20160606
  5. CLOPIDOGREL [Concomitant]
     Active Substance: CLOPIDOGREL BISULFATE
     Dates: start: 20160606
  6. DUORESP SPIROMAX [Suspect]
     Active Substance: BUDESONIDE\FORMOTEROL
     Route: 055
     Dates: start: 20170331
  7. ATORVASTATIN [Concomitant]
     Active Substance: ATORVASTATIN
     Dosage: SECOND LINE TO SIMVASTATIN
     Dates: start: 20160606
  8. LISINOPRIL. [Concomitant]
     Active Substance: LISINOPRIL
     Dates: start: 20160606
  9. SALBUTAMOL [Concomitant]
     Active Substance: ALBUTEROL
     Dosage: TWO PUFFS FOUR TIMES A DAY
     Dates: start: 20160606

REACTIONS (3)
  - Respiratory disorder [Unknown]
  - Throat irritation [Recovered/Resolved]
  - Condition aggravated [Unknown]

NARRATIVE: CASE EVENT DATE: 20171002
